FAERS Safety Report 8399747-4 (Version None)
Quarter: 2012Q2

REPORT INFORMATION
  Report Type: 
  Country: None (occurrence: None)
  Receive Date: 20120531
  Receipt Date: 20120529
  Transmission Date: 20120825
  Serious: Yes (Hospitalization, Other)
  Sender: FDA-Public Use
  Company Number: US-PFIZER INC-2011315770

PATIENT
  Sex: Female
  Weight: 68.027 kg

DRUGS (3)
  1. EFFEXOR XR [Interacting]
     Dosage: UNK
     Dates: start: 20111226
  2. NORVASC [Suspect]
     Indication: HYPERTENSION
     Dosage: 5 MG, 2X/DAY
     Route: 048
     Dates: start: 19950101
  3. NORVASC [Interacting]
     Dosage: 5 MG, AS NEEDED
     Dates: start: 19940101

REACTIONS (5)
  - FLUSHING [None]
  - BLOOD PRESSURE INCREASED [None]
  - STAPHYLOCOCCAL INFECTION [None]
  - CARBUNCLE [None]
  - DRUG INTERACTION [None]
